FAERS Safety Report 12095616 (Version 1)
Quarter: 2016Q1

REPORT INFORMATION
  Report Type: Spontaneous
  Country: US (occurrence: US)
  Receive Date: 20160219
  Receipt Date: 20160219
  Transmission Date: 20160526
  Serious: No
  Sender: FDA-Public Use
  Company Number: US-AUROBINDO-AUR-APL-2015-11424

PATIENT
  Sex: Female

DRUGS (2)
  1. AMOXICILLIN FOR ORAL SUSPENSION USP 400 MG/5 ML [Suspect]
     Active Substance: AMOXICILLIN
     Indication: PYREXIA
  2. AMOXICILLIN FOR ORAL SUSPENSION USP 400 MG/5 ML [Suspect]
     Active Substance: AMOXICILLIN
     Indication: EAR INFECTION
     Dosage: 6.25 ML, UNK
     Route: 048
     Dates: start: 20151201, end: 20151207

REACTIONS (7)
  - Product substitution issue [Unknown]
  - Cough [Unknown]
  - Product contamination physical [Unknown]
  - Vomiting [Unknown]
  - Asthma [Unknown]
  - Dyspnoea [Unknown]
  - Product substitution issue [None]
